FAERS Safety Report 17337354 (Version 5)
Quarter: 2022Q1

REPORT INFORMATION
  Report Type: Report from Study
  Country: US (occurrence: US)
  Receive Date: 20200129
  Receipt Date: 20220325
  Transmission Date: 20220423
  Serious: Yes (Hospitalization, Other)
  Sender: FDA-Public Use
  Company Number: None

PATIENT
  Age: 75 Year
  Sex: Female

DRUGS (2)
  1. ENTRESTO [Suspect]
     Active Substance: SACUBITRIL\VALSARTAN
     Indication: Cardiac failure
     Dosage: UNK UNK, BID
     Route: 048
     Dates: start: 20170726
  2. ENTRESTO [Suspect]
     Active Substance: SACUBITRIL\VALSARTAN
     Dosage: 200 MG (97/103 MG:SACUBITRIL 97 MG/ VALSARTAN 103 MG)
     Route: 048

REACTIONS (6)
  - Fall [Recovered/Resolved]
  - General physical health deterioration [Recovered/Resolved]
  - Respiratory disorder [Recovered/Resolved]
  - Cystitis [Recovered/Resolved]
  - Arteriosclerosis coronary artery [Unknown]
  - Malaise [Unknown]

NARRATIVE: CASE EVENT DATE: 20190401
